FAERS Safety Report 15196195 (Version 1)
Quarter: 2018Q3

REPORT INFORMATION
  Report Type: Spontaneous
  Country: ES (occurrence: ES)
  Receive Date: 20180725
  Receipt Date: 20180725
  Transmission Date: 20181010
  Serious: Yes (Other)
  Sender: FDA-Public Use
  Company Number: ES-SA-2018SA200969

PATIENT
  Age: 84 Year
  Sex: Female
  Weight: 57 kg

DRUGS (7)
  1. CLEXANE [Concomitant]
     Active Substance: ENOXAPARIN SODIUM
     Indication: ANTICOAGULANT THERAPY
     Route: 058
     Dates: start: 20170601
  2. EMCONCOR [Concomitant]
     Active Substance: BISOPROLOL FUMARATE
     Indication: HYPERTENSION
     Route: 048
     Dates: start: 20170601
  3. PRALUENT [Suspect]
     Active Substance: ALIROCUMAB
     Indication: ISCHAEMIC CARDIOMYOPATHY
     Dosage: 75 MG, QOW
     Route: 058
     Dates: start: 20180425, end: 20180524
  4. EZETROL [Concomitant]
     Active Substance: EZETIMIBE
     Indication: HYPERCHOLESTEROLAEMIA
     Route: 048
     Dates: start: 20170601
  5. OMEPRAZOLE. [Concomitant]
     Active Substance: OMEPRAZOLE
     Indication: PROPHYLAXIS
     Route: 048
     Dates: start: 20170601
  6. ALIROCUMAB PREFILLED PEN [Suspect]
     Active Substance: ALIROCUMAB
     Indication: ISCHAEMIC CARDIOMYOPATHY
     Dosage: 75 MG, QOW
     Route: 058
     Dates: start: 20180425, end: 20180524
  7. KARVEA [Concomitant]
     Active Substance: IRBESARTAN
     Indication: HYPERTENSION
     Dosage: 150 MG, QD
     Route: 048
     Dates: start: 20170601

REACTIONS (3)
  - Eosinophilia [Recovered/Resolved]
  - Tubulointerstitial nephritis [Recovered/Resolved]
  - Leukocyturia [Recovered/Resolved]

NARRATIVE: CASE EVENT DATE: 20180516
